FAERS Safety Report 8622341-4 (Version None)
Quarter: 2012Q3

REPORT INFORMATION
  Report Type: 
  Country: None (occurrence: None)
  Receive Date: 20120827
  Receipt Date: 20120816
  Transmission Date: 20120928
  Serious: Yes (Other)
  Sender: FDA-Public Use
  Company Number: DE-009507513-2012SP036079

PATIENT

DRUGS (4)
  1. REBETOL [Suspect]
     Dosage: UNK
     Dates: end: 20120101
  2. VICTRELIS [Suspect]
     Indication: HEPATITIS
     Dosage: 200 MG, QD
     Dates: start: 20120109, end: 20120501
  3. PEG-INTRON [Suspect]
     Indication: HEPATITIS
     Dosage: UNK
     Dates: end: 20120101
  4. LEXOTANIL [Concomitant]

REACTIONS (2)
  - MATERNAL EXPOSURE BEFORE PREGNANCY [None]
  - ABORTION INDUCED [None]
